FAERS Safety Report 7985833-7 (Version None)
Quarter: 2011Q4

REPORT INFORMATION
  Report Type: 
  Country: None (occurrence: None)
  Receive Date: 20111214
  Receipt Date: 20111207
  Transmission Date: 20120403
  Serious: Yes (Life-Threatening, Hospitalization)
  Sender: FDA-Public Use
  Company Number: 2011SP057413

PATIENT
  Age: 42 Year
  Sex: Female
  Weight: 53.5244 kg

DRUGS (4)
  1. SYNTHROID [Concomitant]
  2. NUVARING [Suspect]
     Indication: CONTRACEPTION
     Dosage: QM;VAG
     Route: 067
     Dates: start: 20111107
  3. NUVARING [Suspect]
     Indication: MENSTRUAL DISORDER
     Dosage: QM;VAG
     Route: 067
     Dates: start: 20111107
  4. RITALIN [Concomitant]

REACTIONS (7)
  - HEADACHE [None]
  - HYPOAESTHESIA [None]
  - WEIGHT INCREASED [None]
  - MUSCLE SPASMS [None]
  - APHASIA [None]
  - HAEMORRHAGE [None]
  - DIPLOPIA [None]
